FAERS Safety Report 8539509-8 (Version None)
Quarter: 2012Q3

REPORT INFORMATION
  Report Type: 
  Country: None (occurrence: None)
  Receive Date: 20120726
  Receipt Date: 20120723
  Transmission Date: 20120928
  Serious: Yes (Hospitalization)
  Sender: FDA-Public Use
  Company Number: JP-AMGEN-JPNCT2012045098

PATIENT
  Age: 51 Year
  Sex: Female
  Weight: 66 kg

DRUGS (8)
  1. CELEBREX [Concomitant]
     Indication: RHEUMATOID ARTHRITIS
     Dosage: MORNING
     Route: 048
     Dates: start: 20080101
  2. BLINDED DENOSUMAB [Suspect]
     Indication: RHEUMATOID ARTHRITIS
     Dosage: UNK
     Route: 058
     Dates: start: 20110617, end: 20120413
  3. FOLIAMIN [Concomitant]
     Route: 048
     Dates: start: 20080101
  4. DICLOFENAC SODIUM [Concomitant]
     Indication: RHEUMATOID ARTHRITIS
     Dosage: AS NEEDED
     Route: 054
     Dates: start: 20120217
  5. PLACEBO [Suspect]
     Indication: RHEUMATOID ARTHRITIS
     Dosage: UNK
     Route: 058
     Dates: start: 20110617, end: 20120413
  6. RHEUMATREX [Concomitant]
     Indication: RHEUMATOID ARTHRITIS
     Route: 048
     Dates: start: 20080101
  7. PREDNISOLONE [Concomitant]
     Indication: RHEUMATOID ARTHRITIS
     Dosage: MORNING
     Route: 048
     Dates: start: 20080101
  8. LORFENAMIN [Concomitant]
     Indication: RHEUMATOID ARTHRITIS
     Route: 048
     Dates: start: 20111212

REACTIONS (1)
  - RENAL CELL CARCINOMA [None]
